FAERS Safety Report 9120274 (Version 3)
Quarter: 2013Q1

REPORT INFORMATION
  Report Type: Report from Study
  Country: US (occurrence: US)
  Receive Date: 20130226
  Receipt Date: 20130315
  Transmission Date: 20140127
  Serious: No
  Sender: FDA-Public Use
  Company Number: US-VERTEX PHARMACEUTICALS INC.-2013-002602

PATIENT
  Age: 68 Year
  Sex: Female
  Weight: 78 kg

DRUGS (9)
  1. VX-950 (TELAPREVIR) [Suspect]
     Indication: HEPATITIS C
     Dosage: 750 MG, TID
     Route: 048
  2. RIBAVIRIN [Suspect]
     Indication: HEPATITIS C
     Dosage: 200 MG
  3. PEGASYS [Suspect]
     Indication: HEPATITIS C
  4. HUMALOG MIX [Concomitant]
     Dosage: 75/25 KWP
  5. METFORMIN [Concomitant]
     Dosage: 500 MG
  6. ZOLOFT [Concomitant]
     Dosage: 100 MG
  7. METOPROLOL TAR [Concomitant]
     Dosage: 25 MG
  8. VITAMIN B12 [Concomitant]
     Dosage: 1000 CR
  9. RED YEAST CAP RICE [Concomitant]
     Dosage: 1 DF, QD

REACTIONS (11)
  - Dyspnoea [Unknown]
  - Blood glucose decreased [Unknown]
  - Influenza like illness [Unknown]
  - Pyrexia [Unknown]
  - Pain [Unknown]
  - Paranasal sinus hypersecretion [Unknown]
  - Disturbance in attention [Unknown]
  - Decreased appetite [Unknown]
  - Fatigue [Unknown]
  - Vomiting [Unknown]
  - Nausea [Unknown]
